FAERS Safety Report 23172468 (Version 4)
Quarter: 2025Q3

REPORT INFORMATION
  Report Type: Report from Study
  Country: EG (occurrence: EG)
  Receive Date: 20231110
  Receipt Date: 20250925
  Transmission Date: 20251021
  Serious: Yes (Disabling)
  Sender: NOVARTIS
  Company Number: EG-002147023-NVSC2023EG239287

PATIENT
  Sex: Male

DRUGS (9)
  1. ENTRESTO [Suspect]
     Active Substance: SACUBITRIL\VALSARTAN
     Indication: Cardiac failure
     Dosage: 50 MG, BID
     Route: 048
     Dates: start: 2021
  2. ENTRESTO [Suspect]
     Active Substance: SACUBITRIL\VALSARTAN
     Indication: Heart failure with reduced ejection fraction
     Dosage: 100 MG, BID
     Route: 048
     Dates: start: 2021
  3. ENTRESTO [Suspect]
     Active Substance: SACUBITRIL\VALSARTAN
     Dosage: 100 MG, BID
     Route: 065
  4. ENTRESTO [Suspect]
     Active Substance: SACUBITRIL\VALSARTAN
     Dosage: 200 MG, BID (WHEN 200 IS NOT AVAILABLE PATIENT TAKES ENTRESTO 100 MG TWO TABS TWICE DAILY UPON HIS O
     Route: 048
     Dates: start: 2021
  5. ENTRESTO [Suspect]
     Active Substance: SACUBITRIL\VALSARTAN
     Dosage: 200 MG, QD
     Route: 065
  6. ENTRESTO [Suspect]
     Active Substance: SACUBITRIL\VALSARTAN
     Dosage: 200 MG, BID
     Route: 048
  7. ATORVASTATIN CALCIUM [Concomitant]
     Active Substance: ATORVASTATIN CALCIUM
     Indication: Lipids
     Dosage: 40 MG, QD
     Route: 065
     Dates: start: 2021
  8. ASPIRIN [Concomitant]
     Active Substance: ASPIRIN
     Indication: Anticoagulant therapy
     Dosage: 1 DOSAGE FORM, QD
     Route: 048
     Dates: start: 2021
  9. TRAMADOL [Concomitant]
     Active Substance: TRAMADOL
     Indication: Neoplasm malignant
     Dosage: 4- 50MG OR 100MG OR 225MG QD
     Route: 065
     Dates: start: 2019

REACTIONS (4)
  - Gait disturbance [Recovered/Resolved]
  - Dizziness [Unknown]
  - Off label use [Unknown]
  - Wrong technique in product usage process [Unknown]

NARRATIVE: CASE EVENT DATE: 20230101
